FAERS Safety Report 8959547 (Version 2)
Quarter: 2012Q4

REPORT INFORMATION
  Report Type: 
  Country: DE (occurrence: DE)
  Receive Date: 20121212
  Receipt Date: 20121220
  Transmission Date: 20130627
  Serious: Yes (Disabling)
  Sender: FDA-Public Use
  Company Number: DE-MERCK-2012SP005230

PATIENT
  Age: 18 Year
  Sex: Male

DRUGS (6)
  1. BOCEPREVIR [Suspect]
     Indication: CHRONIC HEPATITIS C
     Dosage: 800 mg, tid
     Route: 048
     Dates: start: 20100203, end: 20101208
  2. RIBAVIRIN [Suspect]
     Indication: CHRONIC HEPATITIS C
     Dosage: 1200 mg/day, 3 capsules BID
     Route: 048
     Dates: start: 20100106, end: 20101208
  3. PEGINTERFERON ALFA-2B [Suspect]
     Indication: CHRONIC HEPATITIS C
     Dosage: 150 Microgram, qw
     Route: 058
     Dates: start: 20100108, end: 20101203
  4. ITRACONAZOLE [Concomitant]
     Indication: APHTHOUS STOMATITIS
     Route: 048
     Dates: start: 20100907, end: 20100921
  5. AMPHO MORONAL [Concomitant]
     Indication: APHTHOUS STOMATITIS
     Dosage: UNK UNK, TID
     Route: 048
     Dates: start: 20100907, end: 20101124
  6. XYLOCAINE [Concomitant]
     Indication: APHTHOUS STOMATITIS
     Dosage: UNK UNK, PRN
     Route: 061
     Dates: start: 20100823, end: 20100910

REACTIONS (1)
  - Retinitis [Recovered/Resolved]
